FAERS Safety Report 12790788 (Version 1)
Quarter: 2016Q3

REPORT INFORMATION
  Report Type: Spontaneous
  Country: US (occurrence: US)
  Receive Date: 20160929
  Receipt Date: 20160929
  Transmission Date: 20161109
  Serious: Yes (Other)
  Sender: FDA-Public Use
  Company Number: US-WEST-WARD PHARMACEUTICALS CORP.-US-H14001-16-01612

PATIENT
  Age: 81 Year
  Sex: Female
  Weight: 64.92 kg

DRUGS (6)
  1. PREDNISONE. [Suspect]
     Active Substance: PREDNISONE
     Indication: MYASTHENIA GRAVIS
     Route: 048
     Dates: start: 201603, end: 20160811
  2. PREDNISONE. [Suspect]
     Active Substance: PREDNISONE
     Route: 048
     Dates: start: 201607
  3. GLUCOSAMINE/CHONDROITIN WITH MSM [Concomitant]
     Indication: ARTHRITIS
     Route: 065
  4. AMINO ACIDS [Concomitant]
     Active Substance: AMINO ACIDS
     Indication: ARTHRITIS
     Route: 065
  5. PREDNISONE. [Suspect]
     Active Substance: PREDNISONE
     Indication: MYASTHENIA GRAVIS
     Route: 042
     Dates: start: 201603
  6. BONE UP [Concomitant]
     Indication: ARTHRITIS
     Route: 065

REACTIONS (6)
  - Arthralgia [Recovered/Resolved]
  - Nervousness [Recovered/Resolved]
  - Pain in extremity [Recovered/Resolved]
  - Peripheral swelling [Recovered/Resolved]
  - Osteoarthritis [Recovered/Resolved]
  - Visual acuity reduced [Not Recovered/Not Resolved]

NARRATIVE: CASE EVENT DATE: 201603
